FAERS Safety Report 4461443-3 (Version None)
Quarter: 2004Q3

REPORT INFORMATION
  Report Type: 
  Country: None (occurrence: None)
  Receive Date: 20040928
  Receipt Date: 20040921
  Transmission Date: 20050211
  Serious: Yes (Disabling)
  Sender: FDA-Public Use
  Company Number: US-MERCK-0409USA01849

PATIENT
  Age: 80 Year
  Sex: Male

DRUGS (9)
  1. LOTREL [Concomitant]
     Route: 065
  2. LIPITOR [Concomitant]
     Route: 065
  3. PLAVIX [Concomitant]
     Route: 065
  4. PRILOSEC [Concomitant]
     Route: 065
  5. PRIMIDONE [Concomitant]
     Route: 065
  6. VIOXX [Suspect]
     Indication: ARTHRITIS
     Route: 048
     Dates: start: 20040628
  7. VIOXX [Suspect]
     Route: 048
     Dates: start: 20040628
  8. FLOMAX [Concomitant]
     Route: 065
  9. DETROL LA [Concomitant]
     Route: 065

REACTIONS (3)
  - ABDOMINAL DISTENSION [None]
  - MOVEMENT DISORDER [None]
  - PAIN [None]
